FAERS Safety Report 20736097 (Version 1)
Quarter: 2022Q2

REPORT INFORMATION
  Report Type: Spontaneous
  Country: US (occurrence: None)
  Receive Date: 20220421
  Receipt Date: 20220421
  Transmission Date: 20220720
  Serious: Yes (Hospitalization)
  Sender: FDA-Public Use
  Company Number: None

PATIENT
  Age: 73 Year
  Sex: Female

DRUGS (11)
  1. TACROLIMUS [Suspect]
     Active Substance: TACROLIMUS
     Indication: Renal transplant
     Dosage: FREQUENCY : TWICE A DAY;?
     Route: 048
     Dates: start: 20151113
  2. MYCOPHENOLIC ACID [Suspect]
     Active Substance: MYCOPHENOLIC ACID
     Indication: Renal transplant
     Dosage: FREQUENCY : TWICE A DAY;?
     Route: 048
     Dates: start: 20201204
  3. ATORVASTATIN [Concomitant]
     Active Substance: ATORVASTATIN
     Dates: start: 20160712
  4. CLONIDINE [Concomitant]
     Active Substance: CLONIDINE
     Dates: start: 20160307
  5. DONEPEZIL [Concomitant]
     Active Substance: DONEPEZIL
     Dates: start: 20220204
  6. FAMOTIDINE [Concomitant]
     Active Substance: FAMOTIDINE
     Dates: start: 20161027
  7. magnesium Chloride ER 64mg [Concomitant]
     Dates: start: 20161027
  8. Nifedipine ER 30mg [Concomitant]
     Dates: start: 20200420
  9. SULFAMETHOXAZOLE\TRIMETHOPRIM [Concomitant]
     Active Substance: SULFAMETHOXAZOLE\TRIMETHOPRIM
     Dates: start: 20170111
  10. Trelegy Ellipta 100/62.5/25 [Concomitant]
     Dates: start: 20210728
  11. Albuterol Sulfate HFA 90mcg [Concomitant]
     Dates: start: 20220319

REACTIONS (1)
  - Hip arthroplasty [None]

NARRATIVE: CASE EVENT DATE: 20220421
